FAERS Safety Report 10327303 (Version 1)
Quarter: 2014Q3

REPORT INFORMATION
  Report Type: Spontaneous
  Country: GB (occurrence: GB)
  Receive Date: 20140721
  Receipt Date: 20140721
  Transmission Date: 20150326
  Serious: Yes (Other)
  Sender: FDA-Public Use
  Company Number: GB-ACCORD-024833

PATIENT
  Age: 60 Year

DRUGS (2)
  1. CITALOPRAM [Interacting]
     Active Substance: CITALOPRAM HYDROBROMIDE
     Indication: PRODUCT USED FOR UNKNOWN INDICATION
  2. TRAMADOL/TRAMADOL HYDROCHLORIDE [Suspect]
     Active Substance: TRAMADOL HYDROCHLORIDE
     Indication: ARTHRALGIA

REACTIONS (13)
  - Muscle rigidity [Unknown]
  - Disorientation [Unknown]
  - Speech disorder [Unknown]
  - Confusional state [Unknown]
  - Accidental overdose [Unknown]
  - Unresponsive to stimuli [Unknown]
  - Skin discolouration [Unknown]
  - Medication error [Unknown]
  - Wrong drug administered [None]
  - Bruxism [Unknown]
  - Fall [Unknown]
  - Drug interaction [Unknown]
  - Product packaging confusion [None]
